APPROVED DRUG PRODUCT: DEFERIPRONE
Active Ingredient: DEFERIPRONE
Strength: 1GM
Dosage Form/Route: TABLET;ORAL
Application: A220132 | Product #002 | TE Code: AB
Applicant: SENORES PHARMACEUTICALS INC
Approved: Dec 11, 2025 | RLD: No | RS: No | Type: RX